FAERS Safety Report 14456247 (Version 2)
Quarter: 2018Q1

REPORT INFORMATION
  Report Type: Spontaneous
  Country: RU (occurrence: RU)
  Receive Date: 20180130
  Receipt Date: 20180209
  Transmission Date: 20180509
  Serious: Yes (Other)
  Sender: FDA-Public Use
  Company Number: RU-ASTRAZENECA-2018SE03635

PATIENT
  Age: 70 Year
  Sex: Female
  Weight: 50 kg

DRUGS (7)
  1. EGILOK [Concomitant]
     Active Substance: METOPROLOL TARTRATE
  2. BRILINTA [Suspect]
     Active Substance: TICAGRELOR
     Indication: MYOCARDIAL INFARCTION
     Route: 048
     Dates: start: 20170106
  3. THROMBO ASS [Concomitant]
     Active Substance: ASPIRIN
  4. ATORIS [Concomitant]
     Active Substance: ATORVASTATIN CALCIUM
  5. THYROXINE [Concomitant]
     Active Substance: LEVOTHYROXINE
  6. VEROSPIRON [Concomitant]
     Active Substance: SPIRONOLACTONE
  7. PRESTARIUM [Concomitant]
     Active Substance: PERINDOPRIL

REACTIONS (5)
  - Cardiac failure chronic [Unknown]
  - Left ventricular hypertrophy [Unknown]
  - Hypertension [Unknown]
  - Vomiting projectile [Recovered/Resolved]
  - Blood pressure decreased [Not Recovered/Not Resolved]

NARRATIVE: CASE EVENT DATE: 20180107
